FAERS Safety Report 8247839-2 (Version None)
Quarter: 2012Q1

REPORT INFORMATION
  Report Type: 
  Country: None (occurrence: None)
  Receive Date: 20120330
  Receipt Date: 20120322
  Transmission Date: 20120608
  Serious: Yes (Other)
  Sender: FDA-Public Use
  Company Number: RO-JNJFOC-20120311966

PATIENT
  Sex: Female
  Weight: 60 kg

DRUGS (2)
  1. PRAMIRACETAM [Concomitant]
     Indication: COGNITIVE DISORDER
     Route: 048
     Dates: start: 20110801, end: 20120101
  2. RISPERIDONE [Suspect]
     Indication: SCHIZOPHRENIA
     Route: 030
     Dates: start: 20110801

REACTIONS (1)
  - ENCOPRESIS [None]
